FAERS Safety Report 7725863-3 (Version None)
Quarter: 2011Q3

REPORT INFORMATION
  Report Type: 
  Country: None (occurrence: None)
  Receive Date: 20110902
  Receipt Date: 20110824
  Transmission Date: 20111222
  Serious: Yes (Hospitalization)
  Sender: FDA-Public Use
  Company Number: BR-SANOFI-AVENTIS-2011SA051877

PATIENT
  Age: 44 Year
  Sex: Female
  Weight: 89 kg

DRUGS (4)
  1. DOCETAXEL [Suspect]
     Route: 041
     Dates: start: 20110701, end: 20110701
  2. DOCETAXEL [Suspect]
     Route: 041
     Dates: start: 20110429, end: 20110429
  3. BLINDED THERAPY [Suspect]
     Route: 042
     Dates: start: 20110429, end: 20110429
  4. BLINDED THERAPY [Suspect]
     Route: 042
     Dates: start: 20110701, end: 20110701

REACTIONS (3)
  - PNEUMONIA [None]
  - STAPHYLOCOCCUS TEST POSITIVE [None]
  - DEVICE RELATED INFECTION [None]
